FAERS Safety Report 4335707-8 (Version None)
Quarter: 2004Q2

REPORT INFORMATION
  Report Type: 
  Country: None (occurrence: None)
  Receive Date: 20040409
  Receipt Date: 20040331
  Transmission Date: 20050107
  Serious: Yes (Hospitalization)
  Sender: FDA-Public Use
  Company Number: SE-GLAXOSMITHKLINE-B0328702A

PATIENT
  Age: 67 Year
  Sex: Male

DRUGS (5)
  1. ZYBAN [Suspect]
     Dosage: 150MG PER DAY
     Dates: start: 20030925, end: 20031023
  2. LOGIMAX [Concomitant]
  3. THYROXIN SODIUM [Concomitant]
  4. METFORMIN HYDROCHLORIDE [Concomitant]
  5. ROSIGLITAZONE MALEATE [Concomitant]

REACTIONS (5)
  - CEREBRAL INFARCTION [None]
  - DIPLOPIA [None]
  - DYSARTHRIA [None]
  - HEADACHE [None]
  - HEMIPARESIS [None]
